FAERS Safety Report 23247762 (Version 1)
Quarter: 2023Q4

REPORT INFORMATION
  Report Type: Spontaneous
  Country: ID (occurrence: ID)
  Receive Date: 20231130
  Receipt Date: 20231130
  Transmission Date: 20240110
  Serious: Yes (Other)
  Sender: FDA-Public Use
  Company Number: ID-MLMSERVICE-20231120-4669323-1

PATIENT
  Age: 10 Year
  Sex: Female

DRUGS (6)
  1. ELOCON [Suspect]
     Active Substance: MOMETASONE FUROATE
     Indication: Parapsoriasis
     Dosage: UNK
     Route: 061
     Dates: start: 201907, end: 202003
  2. CETIRIZINE [Concomitant]
     Active Substance: CETIRIZINE HYDROCHLORIDE
     Indication: Pustular psoriasis
     Dosage: UNK
     Dates: start: 201907, end: 202003
  3. MYCOPHENOLATE MOFETIL [Concomitant]
     Active Substance: MYCOPHENOLATE MOFETIL
     Indication: Pustular psoriasis
     Dosage: UNK
     Dates: start: 201907, end: 202003
  4. FUCIDIN (FUSIDIC ACID) [Concomitant]
     Active Substance: FUSIDIC ACID
     Dosage: UNK
     Dates: start: 201907, end: 202003
  5. ACITRETIN [Concomitant]
     Active Substance: ACITRETIN
     Indication: Pustular psoriasis
     Dosage: 25 MILLIGRAM, QD
     Route: 065
     Dates: start: 2019
  6. FUSIDIC ACID [Concomitant]
     Active Substance: FUSIDIC ACID
     Indication: Pustular psoriasis
     Dosage: UNK
     Route: 061
     Dates: start: 201907, end: 202003

REACTIONS (1)
  - Weight increased [Unknown]
